FAERS Safety Report 25737256 (Version 1)
Quarter: 2025Q3

REPORT INFORMATION
  Report Type: Spontaneous
  Country: US (occurrence: US)
  Receive Date: 20250828
  Receipt Date: 20250828
  Transmission Date: 20251020
  Serious: No
  Sender: ABBVIE
  Company Number: US-ABBVIE-6436323

PATIENT

DRUGS (2)
  1. VRAYLAR [Suspect]
     Active Substance: CARIPRAZINE
     Indication: Major depression
     Route: 048
  2. PRISTIQ EXTENDED-RELEASE [Concomitant]
     Active Substance: DESVENLAFAXINE SUCCINATE
     Indication: Product used for unknown indication

REACTIONS (1)
  - Panic attack [Unknown]
